FAERS Safety Report 7029093 (Version 3)
Quarter: 2013Q2

REPORT INFORMATION
  Report Type: Spontaneous
  Country: US (occurrence: None)
  Receive Date: 20090522
  Receipt Date: 20120621
  Transmission Date: 20140414
  Serious: Yes (Other)
  Sender: FDA-Public Use
  Company Number: 8038095

PATIENT
  Age: 30 Year
  Sex: Female
  Weight: 54.6 kg

DRUGS (4)
  1. CIMZIA [Suspect]
     Indication: CROHN^S DISEASE
     Dosage: (400 MG 1X/2 WEEKS SUBCUTANEOUS)
     Route: 058
     Dates: start: 20081014
  2. ENTOCORT EC [Concomitant]
  3. PRENATAL VITAMINS /01549301/ [Concomitant]
  4. TYLENOL WITH CODEINE [Concomitant]

REACTIONS (11)
  - GASTROOESOPHAGEAL REFLUX DISEASE [None]
  - MATERNAL EXPOSURE DURING PREGNANCY [None]
  - Multiple sclerosis relapse [None]
  - Injection site vesicles [None]
  - Injection site reaction [None]
  - Drug ineffective [None]
  - Neurological decompensation [None]
  - Gait disturbance [None]
  - Injection site discolouration [None]
  - Injection site erythema [None]
  - Injection site swelling [None]
